FAERS Safety Report 24149667 (Version 1)
Quarter: 2024Q3

REPORT INFORMATION
  Report Type: Spontaneous
  Country: US (occurrence: US)
  Receive Date: 20240730
  Receipt Date: 20240730
  Transmission Date: 20241017
  Serious: Yes (Hospitalization)
  Sender: BRISTOL MYERS SQUIBB
  Company Number: US-BRISTOL-MYERS SQUIBB COMPANY-2024-110897

PATIENT
  Age: 90 Year
  Sex: Male
  Weight: 83.91 kg

DRUGS (1)
  1. ONUREG [Suspect]
     Active Substance: AZACITIDINE
     Indication: Myelodysplastic syndrome
     Dosage: DAILY, DAYS 1-14 OF A 28D CYCLE.
     Route: 048
     Dates: start: 20240401

REACTIONS (2)
  - Infection [Not Recovered/Not Resolved]
  - Off label use [Unknown]
